FAERS Safety Report 7286398-8 (Version None)
Quarter: 2011Q1

REPORT INFORMATION
  Report Type: 
  Country: None (occurrence: None)
  Receive Date: 20110131
  Receipt Date: 20110114
  Transmission Date: 20110831
  Serious: Yes (Death)
  Sender: FDA-Public Use
  Company Number: 1000018440

PATIENT
  Age: 19 Year
  Sex: Female

DRUGS (2)
  1. METAXALONE [Suspect]
  2. CITALOPRAM HYDROBROMIDE [Suspect]

REACTIONS (1)
  - COMPLETED SUICIDE [None]
